FAERS Safety Report 13993298 (Version 1)
Quarter: 2017Q3

REPORT INFORMATION
  Report Type: Report from Study
  Country: GB (occurrence: GB)
  Receive Date: 20170920
  Receipt Date: 20170920
  Transmission Date: 20171128
  Serious: Yes (Hospitalization)
  Sender: FDA-Public Use
  Company Number: GB-JNJFOC-20120508647

PATIENT
  Age: 25 Year
  Sex: Male
  Weight: 66.4 kg

DRUGS (4)
  1. STELARA [Suspect]
     Active Substance: USTEKINUMAB
     Indication: PSORIASIS
     Route: 058
     Dates: start: 20110927, end: 20111010
  2. MORPHINE [Concomitant]
     Active Substance: MORPHINE
     Route: 065
     Dates: start: 20111105, end: 20111220
  3. STELARA [Suspect]
     Active Substance: USTEKINUMAB
     Indication: PSORIASIS
     Route: 058
     Dates: start: 20120111
  4. CYCLOSPORIN [Concomitant]
     Active Substance: CYCLOSPORINE
     Route: 065
     Dates: start: 20130611

REACTIONS (8)
  - Fall [Recovered/Resolved]
  - Rib fracture [Recovered/Resolved]
  - Subdural haematoma [Recovered/Resolved]
  - Skull fractured base [Recovered/Resolved]
  - Cervical vertebral fracture [Recovered/Resolved]
  - Renal infarct [Recovered/Resolved]
  - Traumatic liver injury [Recovered/Resolved]
  - Pneumonia staphylococcal [Unknown]

NARRATIVE: CASE EVENT DATE: 20111105
